FAERS Safety Report 8157692-3 (Version None)
Quarter: 2012Q1

REPORT INFORMATION
  Report Type: 
  Country: None (occurrence: None)
  Receive Date: 20120222
  Receipt Date: 20120214
  Transmission Date: 20120608
  Serious: Yes (Other)
  Sender: FDA-Public Use
  Company Number: CH-ASTRAZENECA-2012SE10284

PATIENT
  Age: 66 Year
  Sex: Female

DRUGS (3)
  1. BUPIVACAINE HCL [Suspect]
     Route: 056
  2. LIDOCAINE [Suspect]
     Dosage: 2X 5 ML MIXTURE OF LIDOCAINE AND BUPIVACAINE WITHOUT ADRENALIN
     Route: 053
  3. BUPIVACAINE HCL [Suspect]
     Dosage: 2X 5 ML MIXTURE OF LIDOCAINE AND BUPIVACAINE WITHOUT ADRENALIN
     Route: 053

REACTIONS (2)
  - RETINAL ARTERY OCCLUSION [None]
  - RETINAL VEIN OCCLUSION [None]
